FAERS Safety Report 4393437-0 (Version None)
Quarter: 2004Q3

REPORT INFORMATION
  Report Type: 
  Country: None (occurrence: None)
  Receive Date: 20040707
  Receipt Date: 20040707
  Transmission Date: 20050211
  Serious: No
  Sender: FDA-Public Use
  Company Number: None

PATIENT
  Age: 32 Year
  Sex: Female
  Weight: 54.4316 kg

DRUGS (9)
  1. LEVAQUIN [Suspect]
     Indication: BRONCHITIS
     Dosage: 500 MG PO QD
     Route: 048
     Dates: start: 20040609
  2. LEVAQUIN [Suspect]
     Indication: OTITIS MEDIA
     Dosage: 500 MG PO QD
     Route: 048
     Dates: start: 20040609
  3. LEVAQUIN [Suspect]
     Indication: SINUSITIS
     Dosage: 500 MG PO QD
     Route: 048
     Dates: start: 20040609
  4. LEVAQUIN [Suspect]
     Indication: BRONCHITIS
     Dosage: 500 MG PO QD
     Route: 048
     Dates: start: 20040611
  5. LEVAQUIN [Suspect]
     Indication: OTITIS MEDIA
     Dosage: 500 MG PO QD
     Route: 048
     Dates: start: 20040611
  6. LEVAQUIN [Suspect]
     Indication: SINUSITIS
     Dosage: 500 MG PO QD
     Route: 048
     Dates: start: 20040611
  7. FLOVENT [Concomitant]
  8. ALBUTEROL [Concomitant]
  9. FLURASE [Concomitant]

REACTIONS (3)
  - ARTHRALGIA [None]
  - MYALGIA [None]
  - SWELLING [None]
